FAERS Safety Report 13156605 (Version 4)
Quarter: 2017Q1

REPORT INFORMATION
  Report Type: Spontaneous
  Country: US (occurrence: US)
  Receive Date: 20170126
  Receipt Date: 20170215
  Transmission Date: 20170428
  Serious: Yes (Death, Hospitalization)
  Sender: FDA-Public Use
  Company Number: US-ACTELION-A-US2017-148983

PATIENT
  Age: 62 Year
  Sex: Female

DRUGS (1)
  1. OPSUMIT [Suspect]
     Active Substance: MACITENTAN
     Indication: PULMONARY HYPERTENSION
     Dosage: 10 MG, QD
     Route: 048
     Dates: start: 20160915, end: 20170123

REACTIONS (7)
  - Dysgeusia [Unknown]
  - Death [Fatal]
  - Disease complication [Unknown]
  - Decreased appetite [Unknown]
  - Cardiac disorder [Unknown]
  - Pulmonary arterial hypertension [Unknown]
  - Fluid overload [Unknown]

NARRATIVE: CASE EVENT DATE: 20170123
